FAERS Safety Report 22104364 (Version 1)
Quarter: 2023Q1

REPORT INFORMATION
  Report Type: Spontaneous
  Country: US (occurrence: US)
  Receive Date: 20230316
  Receipt Date: 20230316
  Transmission Date: 20230417
  Serious: No
  Sender: FDA-Public Use
  Company Number: US-PFIZER INC-PV202300049739

PATIENT
  Age: 77 Year
  Sex: Female
  Weight: 80.272 kg

DRUGS (3)
  1. DOXYCYCLINE HYCLATE [Suspect]
     Active Substance: DOXYCYCLINE HYCLATE
     Indication: Gingival pain
     Dosage: UNK
  2. DOXYCYCLINE HYCLATE [Suspect]
     Active Substance: DOXYCYCLINE HYCLATE
     Indication: Tooth extraction
  3. DOXYCYCLINE HYCLATE [Suspect]
     Active Substance: DOXYCYCLINE HYCLATE
     Indication: Gingival disorder

REACTIONS (7)
  - Rash [Recovered/Resolved]
  - Abdominal pain [Unknown]
  - Nausea [Unknown]
  - Vertigo [Unknown]
  - Cold sweat [Unknown]
  - Constipation [Unknown]
  - Off label use [Unknown]
